FAERS Safety Report 5863870-6 (Version None)
Quarter: 2008Q3

REPORT INFORMATION
  Report Type: 
  Country: None (occurrence: None)
  Receive Date: 20080827
  Receipt Date: 20080818
  Transmission Date: 20090109
  Serious: Yes (Disabling)
  Sender: FDA-Public Use
  Company Number: GXKR2008GB07789

PATIENT
  Age: 36 Year
  Sex: Female

DRUGS (4)
  1. CETIRIZINE [Suspect]
     Indication: SEASONAL ALLERGY
     Dosage: 10 MG, QD, ORAL
     Route: 048
     Dates: start: 20080705, end: 20080707
  2. FEXOFENADINE HCL [Concomitant]
  3. FRISIUM (CLOBAZAM) [Concomitant]
  4. KEPPRA [Concomitant]

REACTIONS (6)
  - AURA [None]
  - CRYING [None]
  - DEPRESSION [None]
  - DIZZINESS [None]
  - DYSTONIA [None]
  - MALAISE [None]
